FAERS Safety Report 7354899-X (Version None)
Quarter: 2011Q1

REPORT INFORMATION
  Report Type: 
  Country: None (occurrence: None)
  Receive Date: 20110307
  Receipt Date: 20110223
  Transmission Date: 20110831
  Serious: Yes (Other)
  Sender: FDA-Public Use
  Company Number: 2011GR_BP0333

PATIENT
  Age: 79 Year
  Sex: Male

DRUGS (4)
  1. FINASTERIDE [Suspect]
     Indication: BENIGN NEOPLASM OF PROSTATE
     Dates: start: 20101201
  2. CODEINE PHOSPHATE/PARACETAMOL (CODEINE PHOSPHATE, PARACETAMOL) [Concomitant]
  3. MISOPROSTOL [Concomitant]
  4. LACTULOSE [Concomitant]

REACTIONS (4)
  - BLOOD ALKALINE PHOSPHATASE INCREASED [None]
  - ALANINE AMINOTRANSFERASE INCREASED [None]
  - BLOOD BILIRUBIN INCREASED [None]
  - GAMMA-GLUTAMYLTRANSFERASE INCREASED [None]
